FAERS Safety Report 9334769 (Version 1)
Quarter: 2013Q2

REPORT INFORMATION
  Report Type: Spontaneous
  Country: US (occurrence: US)
  Receive Date: 20130606
  Receipt Date: 20130606
  Transmission Date: 20140414
  Serious: No
  Sender: FDA-Public Use
  Company Number: US-AMGEN-USASP2013023969

PATIENT
  Age: 83 Year
  Sex: Female
  Weight: 59.86 kg

DRUGS (1)
  1. PROLIA [Suspect]
     Indication: OSTEOPOROSIS POSTMENOPAUSAL
     Dosage: 60 MG, Q6MO
     Route: 058
     Dates: start: 20130401, end: 20130402

REACTIONS (5)
  - Abdominal discomfort [Unknown]
  - Nausea [Unknown]
  - Vomiting [Unknown]
  - Pain [Recovered/Resolved]
  - Fatigue [Recovered/Resolved]
